FAERS Safety Report 6993383-X (Version None)
Quarter: 2010Q3

REPORT INFORMATION
  Report Type: 
  Country: None (occurrence: None)
  Receive Date: 20100917
  Receipt Date: 20091231
  Transmission Date: 20110219
  Serious: No
  Sender: FDA-Public Use
  Company Number: US-ASTRAZENECA-2010SE00057

PATIENT
  Age: 79 Year
  Sex: Female
  Weight: 49.9 kg

DRUGS (2)
  1. SEROQUEL [Suspect]
     Indication: SLEEP DISORDER
     Route: 048
     Dates: start: 20090101, end: 20090101
  2. LITHIUM CARBONATE [Concomitant]

REACTIONS (8)
  - DEMENTIA [None]
  - DIARRHOEA [None]
  - DIZZINESS [None]
  - DYSPHONIA [None]
  - FALL [None]
  - FEELING ABNORMAL [None]
  - INAPPROPRIATE AFFECT [None]
  - WEIGHT DECREASED [None]
